FAERS Safety Report 16306550 (Version 19)
Quarter: 2021Q3

REPORT INFORMATION
  Report Type: Spontaneous
  Country: DE (occurrence: DE)
  Receive Date: 20190513
  Receipt Date: 20210920
  Transmission Date: 20211014
  Serious: Yes (Hospitalization, Other)
  Sender: FDA-Public Use
  Company Number: DE-OTSUKA-2019_017437

PATIENT
  Age: 43 Year
  Sex: Female
  Weight: 116.3 kg

DRUGS (17)
  1. OCREVUS [Suspect]
     Active Substance: OCRELIZUMAB
     Indication: RELAPSING-REMITTING MULTIPLE SCLEROSIS
     Dosage: 300 MG, UNK
     Route: 042
     Dates: start: 20180712
  2. PROPICUM [Suspect]
     Active Substance: SODIUM PROPIONATE
     Indication: PRODUCT USED FOR UNKNOWN INDICATION
     Dosage: 500 MG, BID (EVERY 0.5 DAY 1?0?1)
     Route: 065
     Dates: start: 20190610
  3. ARIPIPRAZOLE. [Suspect]
     Active Substance: ARIPIPRAZOLE
     Indication: PRODUCT USED FOR UNKNOWN INDICATION
     Dosage: 15 MG, QD (1?0?0)
     Route: 065
     Dates: start: 20190514
  4. OCREVUS [Suspect]
     Active Substance: OCRELIZUMAB
     Dosage: 4TH INFUSION
     Route: 042
     Dates: start: 202003
  5. ARIPIPRAZOLE. [Suspect]
     Active Substance: ARIPIPRAZOLE
     Dosage: 15 MG, QD (1?0?0)
     Route: 065
  6. ARIPIPRAZOLE. [Suspect]
     Active Substance: ARIPIPRAZOLE
     Dosage: 10 MG, QD
     Route: 065
  7. ARIPIPRAZOLE. [Suspect]
     Active Substance: ARIPIPRAZOLE
     Dosage: 10 MG, QD (1?0?0)
     Route: 065
  8. OCREVUS [Suspect]
     Active Substance: OCRELIZUMAB
     Dosage: SECOND INFUSION
     Route: 042
     Dates: start: 20180724
  9. IBUPROFEN. [Suspect]
     Active Substance: IBUPROFEN
     Dosage: 600 MG
     Route: 065
     Dates: start: 20210220
  10. NATALIZUMAB [Concomitant]
     Active Substance: NATALIZUMAB
     Indication: PRODUCT USED FOR UNKNOWN INDICATION
     Dosage: 500 MG, BID (EVERY 0.5 DAY 1?0?1)
     Route: 065
     Dates: start: 20190610
  11. OCREVUS [Suspect]
     Active Substance: OCRELIZUMAB
     Dosage: 600 MG, UNK
     Route: 042
     Dates: start: 20200904
  12. IBUPROFEN. [Suspect]
     Active Substance: IBUPROFEN
     Indication: EXOSTOSIS
     Dosage: 600 MG
     Route: 065
  13. CLINDAMYCIN. [Suspect]
     Active Substance: CLINDAMYCIN
     Indication: ACNE
     Dosage: UNK
     Route: 065
  14. ARIPIPRAZOLE. [Suspect]
     Active Substance: ARIPIPRAZOLE
     Dosage: 20 MG, QD (1?0?0)
     Route: 065
  15. OCREVUS [Suspect]
     Active Substance: OCRELIZUMAB
     Dosage: 600 MG, UNK
     Route: 042
     Dates: start: 20190827
  16. CORTISONE [Suspect]
     Active Substance: CORTISONE
     Indication: PRODUCT USED FOR UNKNOWN INDICATION
     Dosage: UNK
     Route: 065
  17. OCREVUS [Suspect]
     Active Substance: OCRELIZUMAB
     Dosage: 600 MG, EVERY 208 DAYS (27?AUG?2019)
     Route: 042
     Dates: start: 20190205

REACTIONS (58)
  - Genital abscess [Not Recovered/Not Resolved]
  - Urine analysis abnormal [Recovered/Resolved]
  - Vaginal haemorrhage [Recovered/Resolved]
  - Dry eye [Recovered/Resolved]
  - Acne [Recovering/Resolving]
  - Pain [Recovering/Resolving]
  - Myalgia [Recovered/Resolved]
  - Vertigo positional [Recovered/Resolved]
  - Panic attack [Recovered/Resolved]
  - Progesterone decreased [Unknown]
  - Joint dislocation [Recovered/Resolved]
  - Depressed mood [Recovered/Resolved]
  - Asthenia [Recovered/Resolved]
  - Multiple sclerosis relapse [Recovered/Resolved]
  - Skin disorder [Not Recovered/Not Resolved]
  - Oestradiol increased [Unknown]
  - Breath sounds abnormal [Recovered/Resolved]
  - Lymphadenopathy [Recovered/Resolved]
  - Smear cervix abnormal [Not Recovered/Not Resolved]
  - Influenza [Recovered/Resolved]
  - Heart rate increased [Recovered/Resolved]
  - Menstruation irregular [Recovered/Resolved]
  - Memory impairment [Recovered/Resolved]
  - Diarrhoea [Recovered/Resolved]
  - Erythema [Recovered/Resolved]
  - Blood oestrogen increased [Unknown]
  - Drug level increased [Recovered/Resolved]
  - Intervertebral disc protrusion [Not Recovered/Not Resolved]
  - Angular cheilitis [Recovered/Resolved]
  - Paraesthesia [Recovered/Resolved]
  - Dyspnoea [Recovered/Resolved]
  - Muscle tightness [Recovered/Resolved]
  - Autoinflammatory disease [Recovered/Resolved]
  - Body temperature increased [Recovered/Resolved]
  - Fatigue [Recovered/Resolved]
  - Headache [Recovered/Resolved]
  - Lacrimal disorder [Unknown]
  - Gingival abscess [Recovered/Resolved]
  - Exostosis [Recovered/Resolved]
  - Fear of disease [Not Recovered/Not Resolved]
  - Mood swings [Recovered/Resolved]
  - Hypoaesthesia [Recovered/Resolved]
  - Pain in extremity [Recovered/Resolved]
  - Insomnia [Recovered/Resolved]
  - Tendon disorder [Unknown]
  - Red blood cell sedimentation rate increased [Recovered/Resolved]
  - Onychomycosis [Recovered/Resolved]
  - Nasal dryness [Recovered/Resolved]
  - Back pain [Recovered/Resolved]
  - Weight increased [Recovered/Resolved]
  - Pruritus [Recovered/Resolved]
  - Inappropriate schedule of product administration [Unknown]
  - Vitamin D decreased [Recovered/Resolved]
  - Listless [Recovered/Resolved]
  - Erythema [Recovered/Resolved]
  - Malaise [Recovered/Resolved]
  - Nasopharyngitis [Recovered/Resolved]
  - Hypersensitivity [Recovered/Resolved]

NARRATIVE: CASE EVENT DATE: 20180712
